FAERS Safety Report 6620509-X (Version None)
Quarter: 2010Q1

REPORT INFORMATION
  Report Type: 
  Country: None (occurrence: None)
  Receive Date: 20100308
  Receipt Date: 20100308
  Transmission Date: 20100710
  Serious: No
  Sender: FDA-Public Use
  Company Number: None

PATIENT
  Age: 50 Year
  Sex: Male
  Weight: 97.5234 kg

DRUGS (1)
  1. CIALIS [Suspect]
     Dosage: 20MG ONCE
     Dates: start: 20100103, end: 20100103

REACTIONS (2)
  - BLINDNESS [None]
  - OPTIC NERVE DISORDER [None]
